FAERS Safety Report 9851730 (Version 2)
Quarter: 2014Q1

REPORT INFORMATION
  Report Type: Spontaneous
  Country: US (occurrence: US)
  Receive Date: 20140129
  Receipt Date: 20140129
  Transmission Date: 20141002
  Serious: Yes (Hospitalization, Other)
  Sender: FDA-Public Use
  Company Number: US-009507513-1401USA013274

PATIENT
  Sex: Female
  Weight: 77.98 kg

DRUGS (8)
  1. SINGULAIR [Suspect]
     Indication: HYPERSENSITIVITY
     Dosage: UNK
     Route: 048
     Dates: start: 2009, end: 2009
  2. SINGULAIR [Suspect]
     Indication: ASTHMA
  3. LYRICA [Suspect]
     Indication: DIABETIC NEUROPATHY
     Dosage: UNK, QD
     Route: 048
     Dates: start: 2005, end: 2010
  4. HYDROCHLOROTHIAZIDE [Concomitant]
     Dosage: UNK
  5. SERTRALINE HYDROCHLORIDE [Concomitant]
     Indication: DEPRESSION
     Dosage: UNK
  6. HYDROXYCHLOROQUINE SULFATE [Concomitant]
     Dosage: UNK
  7. QUINAPRIL HYDROCHLORIDE [Concomitant]
     Dosage: UNK
  8. METFORMIN [Concomitant]
     Indication: DIABETES MELLITUS
     Dosage: UNK

REACTIONS (5)
  - Suicide attempt [Recovered/Resolved]
  - Depression [Recovered/Resolved]
  - Suicidal ideation [Recovered/Resolved]
  - Sleep disorder [Not Recovered/Not Resolved]
  - Medication error [Unknown]
